FAERS Safety Report 8791190 (Version 1)
Quarter: 2012Q4

REPORT INFORMATION
  Report Type: Spontaneous
  Country: US (occurrence: None)
  Receive Date: 20120914
  Receipt Date: 20120914
  Transmission Date: 20130627
  Serious: Yes (Hospitalization)
  Sender: FDA-Public Use
  Company Number: None

PATIENT
  Age: 76 Year
  Sex: Female
  Weight: 60 kg

DRUGS (11)
  1. LOVENOX [Suspect]
     Indication: HIP SURGERY
     Route: 058
  2. ASA [Suspect]
     Indication: SICK SINUS SYNDROME
     Route: 048
  3. ASA [Suspect]
     Indication: CARDIAC PACEMAKER INSERTION
     Route: 048
  4. ATENOLOL [Concomitant]
  5. DIGOXIN [Concomitant]
  6. LASIX [Concomitant]
  7. LOSARTAN [Concomitant]
  8. POTASSIUM CL [Concomitant]
  9. AMBIEN [Concomitant]
  10. HYDROCODONE/APAP [Concomitant]
  11. MVI [Concomitant]

REACTIONS (2)
  - Lower gastrointestinal haemorrhage [None]
  - Post procedural haemorrhage [None]
